FAERS Safety Report 7939274-9 (Version None)
Quarter: 2011Q4

REPORT INFORMATION
  Report Type: 
  Country: None (occurrence: None)
  Receive Date: 20111125
  Receipt Date: 20111122
  Transmission Date: 20120403
  Serious: Yes (Hospitalization, Other)
  Sender: FDA-Public Use
  Company Number: CA-BIOGENIDEC-2011BI044685

PATIENT
  Age: 44 Year
  Sex: Female

DRUGS (2)
  1. CHRONIC SYSTEMIC CORTICOSTEROIDS [Concomitant]
     Dates: start: 20090301
  2. TYSABRI [Suspect]
     Indication: RELAPSING-REMITTING MULTIPLE SCLEROSIS
     Route: 042
     Dates: start: 20110111, end: 20110927

REACTIONS (1)
  - INTERVERTEBRAL DISC DEGENERATION [None]
